FAERS Safety Report 16404581 (Version 1)
Quarter: 2019Q2

REPORT INFORMATION
  Report Type: Spontaneous
  Country: US (occurrence: US)
  Receive Date: 20190607
  Receipt Date: 20190607
  Transmission Date: 20190711
  Serious: No
  Sender: FDA-Public Use
  Company Number: US-GLAXOSMITHKLINE-US2019101048

PATIENT
  Sex: Female

DRUGS (1)
  1. COREG CR [Suspect]
     Active Substance: CARVEDILOL PHOSPHATE
     Indication: MYOCARDIAL INFARCTION
     Dosage: 40 MG, BID
     Route: 048

REACTIONS (1)
  - Drug ineffective [Unknown]
